FAERS Safety Report 13066517 (Version 1)
Quarter: 2016Q4

REPORT INFORMATION
  Report Type: Spontaneous
  Country: NL (occurrence: NL)
  Receive Date: 20161227
  Receipt Date: 20161227
  Transmission Date: 20170207
  Serious: Yes (Death)
  Sender: FDA-Public Use
  Company Number: NL-PFIZER INC-2016595966

PATIENT
  Age: 51 Year
  Sex: Female

DRUGS (2)
  1. POSACONAZOLE [Suspect]
     Active Substance: POSACONAZOLE
  2. VORICONAZOLE. [Suspect]
     Active Substance: VORICONAZOLE

REACTIONS (2)
  - Drug resistance [Fatal]
  - Treatment failure [Fatal]

NARRATIVE: CASE EVENT DATE: 201001
